FAERS Safety Report 8131137-1 (Version None)
Quarter: 2012Q1

REPORT INFORMATION
  Report Type: 
  Country: None (occurrence: None)
  Receive Date: 20120213
  Receipt Date: 20120207
  Transmission Date: 20120608
  Serious: Yes (Other)
  Sender: FDA-Public Use
  Company Number: US-TEVA-321354USA

PATIENT
  Sex: Female

DRUGS (2)
  1. DEXTROAMPHETAMINE SULFATE [Suspect]
     Indication: SLEEP APNOEA SYNDROME
     Dosage: 80 MILLIGRAM;
     Route: 048
     Dates: start: 19670101, end: 20120111
  2. LEVOTHYROXINE SODIUM [Concomitant]

REACTIONS (5)
  - SUICIDAL IDEATION [None]
  - HYPERSOMNIA [None]
  - ACTIVITIES OF DAILY LIVING IMPAIRED [None]
  - DRUG DOSE OMISSION [None]
  - DEPRESSION [None]
